FAERS Safety Report 7233874-X (Version None)
Quarter: 2011Q1

REPORT INFORMATION
  Report Type: 
  Country: None (occurrence: None)
  Receive Date: 20110119
  Receipt Date: 20091201
  Transmission Date: 20110831
  Serious: No
  Sender: FDA-Public Use
  Company Number: US-TEVA-213388USA

PATIENT
  Sex: Female
  Weight: 68.1 kg

DRUGS (2)
  1. COPAXONE [Suspect]
     Indication: MULTIPLE SCLEROSIS
     Route: 058
     Dates: start: 20090429
  2. ORAL CONTRACEPTIVE NOS [Concomitant]
     Route: 048

REACTIONS (4)
  - URTICARIA [None]
  - PRURITUS GENERALISED [None]
  - EYELID OEDEMA [None]
  - CHEST DISCOMFORT [None]
